FAERS Safety Report 8314391-2 (Version None)
Quarter: 2012Q2

REPORT INFORMATION
  Report Type: 
  Country: None (occurrence: None)
  Receive Date: 20120426
  Receipt Date: 20120425
  Transmission Date: 20120825
  Serious: Yes (Other)
  Sender: FDA-Public Use
  Company Number: US-ROCHE-1011094

PATIENT
  Sex: Male

DRUGS (6)
  1. KLONOPIN [Concomitant]
     Indication: ANXIETY
  2. PERCOCET [Concomitant]
     Indication: PAIN
     Dosage: 10/325 MG
     Route: 048
  3. ZELBORAF [Suspect]
     Indication: MALIGNANT MELANOMA
     Route: 048
     Dates: start: 20111021, end: 20120326
  4. MEGACE [Concomitant]
     Route: 048
  5. NEXIUM [Concomitant]
     Indication: GASTROOESOPHAGEAL REFLUX DISEASE
     Route: 048
  6. METOPROLOL TARTRATE [Concomitant]
     Indication: HYPERTENSION
     Route: 048

REACTIONS (5)
  - HICCUPS [None]
  - NEOPLASM PROGRESSION [None]
  - NEOPLASM [None]
  - ARTHRALGIA [None]
  - DYSGEUSIA [None]
